FAERS Safety Report 19301018 (Version 2)
Quarter: 2021Q2

REPORT INFORMATION
  Report Type: Spontaneous
  Country: US (occurrence: US)
  Receive Date: 20210525
  Receipt Date: 20210618
  Transmission Date: 20210717
  Serious: Yes (Other)
  Sender: FDA-Public Use
  Company Number: US-BAYER-2021-145026

PATIENT
  Sex: Male

DRUGS (2)
  1. ANTIBIOTIC SIMPLEX [Concomitant]
  2. KOVALTRY [Suspect]
     Active Substance: ANTIHEMOPHILIC FACTOR, HUMAN RECOMBINANT
     Indication: FACTOR VIII DEFICIENCY
     Dosage: UNK

REACTIONS (10)
  - Orchidectomy [Not Recovered/Not Resolved]
  - Opportunistic infection [Not Recovered/Not Resolved]
  - Fatigue [Not Recovered/Not Resolved]
  - Tooth loss [Not Recovered/Not Resolved]
  - Hepatitis B [Not Recovered/Not Resolved]
  - HIV infection [Not Recovered/Not Resolved]
  - Eye infection [None]
  - Product contamination microbial [Not Recovered/Not Resolved]
  - Cataract operation [Not Recovered/Not Resolved]
  - Quality of life decreased [Not Recovered/Not Resolved]
